FAERS Safety Report 12888381 (Version 1)
Quarter: 2016Q4

REPORT INFORMATION
  Report Type: Report from Study
  Country: None (occurrence: US)
  Receive Date: 20161027
  Receipt Date: 20161027
  Transmission Date: 20170207
  Serious: Yes (Hospitalization)
  Sender: FDA-Public Use
  Company Number: US-ABBVIE-16K-163-1713211-00

PATIENT
  Sex: Male

DRUGS (2)
  1. HUMIRA [Suspect]
     Active Substance: ADALIMUMAB
     Route: 058
     Dates: start: 201608, end: 20160924
  2. HUMIRA [Suspect]
     Active Substance: ADALIMUMAB
     Indication: PSORIASIS
     Dosage: STARTER DOSE
     Route: 058
     Dates: start: 20160804, end: 20160804

REACTIONS (10)
  - Pain [Unknown]
  - Helplessness [Unknown]
  - Pruritus [Unknown]
  - Irritability [Unknown]
  - Psoriasis [Unknown]
  - Infection [Unknown]
  - Emotional distress [Unknown]
  - General physical condition abnormal [Unknown]
  - Immunodeficiency [Unknown]
  - Activities of daily living impaired [Unknown]

NARRATIVE: CASE EVENT DATE: 2016
